FAERS Safety Report 9708650 (Version 1)
Quarter: 2013Q4

REPORT INFORMATION
  Report Type: Spontaneous
  Country: CY (occurrence: None)
  Receive Date: 20131121
  Receipt Date: 20131121
  Transmission Date: 20140711
  Serious: Yes (Hospitalization, Other)
  Sender: FDA-Public Use
  Company Number: IPC201311-000473

PATIENT
  Age: 77 Year
  Sex: Male

DRUGS (3)
  1. METFORMIN HYDROCHLORIDE [Suspect]
     Dosage: 1500 MG PER DAY
  2. 5-FLUOROURACIL [Suspect]
     Indication: ACTINIC KERATOSIS
     Dosage: 0.5%, TOPICAL
     Route: 061
  3. LISINOPRIL (LISINOPRIL) (LISINOPRIL) [Suspect]
     Dosage: 20 MG/DAY

REACTIONS (6)
  - Oedema [None]
  - Pruritus [None]
  - Local swelling [None]
  - Lip swelling [None]
  - Dysphonia [None]
  - Presyncope [None]
